FAERS Safety Report 15937465 (Version 2)
Quarter: 2019Q1

REPORT INFORMATION
  Report Type: Spontaneous
  Country: JP (occurrence: JP)
  Receive Date: 20190208
  Receipt Date: 20190227
  Transmission Date: 20190417
  Serious: Yes (Death)
  Sender: FDA-Public Use
  Company Number: JP-CLINIGEN GROUP PLC/ CLINIGEN HEALTHCARE LTD-JP-CLGN-19-00076

PATIENT
  Age: 23 Year
  Sex: Male
  Weight: 58 kg

DRUGS (3)
  1. FOSCAVIR [Suspect]
     Active Substance: FOSCARNET SODIUM
     Indication: HUMAN HERPESVIRUS 6 INFECTION
     Route: 041
     Dates: start: 20140317, end: 20140524
  2. FOSCAVIR [Suspect]
     Active Substance: FOSCARNET SODIUM
     Indication: VIRAL MYELITIS
  3. CYTARABINE. [Concomitant]
     Active Substance: CYTARABINE
     Indication: ACUTE MYELOID LEUKAEMIA

REACTIONS (6)
  - Leukocytosis [Fatal]
  - Headache [Recovered/Resolved]
  - Sleep disorder [Recovered/Resolved]
  - Leukaemia recurrent [Fatal]
  - Off label use [Unknown]
  - Acute myeloid leukaemia [Fatal]

NARRATIVE: CASE EVENT DATE: 20140325
